FAERS Safety Report 11395150 (Version 1)
Quarter: 2015Q3

REPORT INFORMATION
  Report Type: Spontaneous
  Country: US (occurrence: US)
  Receive Date: 20150819
  Receipt Date: 20150819
  Transmission Date: 20151125
  Serious: No
  Sender: FDA-Public Use
  Company Number: US-PFIZER INC-2015263236

PATIENT
  Age: 52 Year
  Sex: Female

DRUGS (1)
  1. IBRANCE [Suspect]
     Active Substance: PALBOCICLIB
     Indication: NEOPLASM MALIGNANT
     Dosage: 125 MG, DAILY (21 DAYS)
     Route: 048
     Dates: start: 20150611, end: 20150805

REACTIONS (4)
  - Fatigue [Unknown]
  - Dysgeusia [Unknown]
  - Weight decreased [Unknown]
  - Diarrhoea [Unknown]
